FAERS Safety Report 5772338-7 (Version None)
Quarter: 2008Q2

REPORT INFORMATION
  Report Type: 
  Country: None (occurrence: None)
  Receive Date: 20080613
  Receipt Date: 20080603
  Transmission Date: 20081010
  Serious: Yes (Life-Threatening, Hospitalization)
  Sender: FDA-Public Use
  Company Number: BR-ROCHE-565488

PATIENT
  Age: 46 Year
  Sex: Male
  Weight: 95 kg

DRUGS (10)
  1. RIVOTRIL [Suspect]
     Indication: DRUG USE FOR UNKNOWN INDICATION
     Dosage: DOSAGE: HIGH DOSAGE STOP DATE: 2008
     Route: 048
     Dates: start: 20060101
  2. RIVOTRIL [Suspect]
     Dosage: DOSAGE: 4-5 MG DAILY; START DATE: 2008
     Route: 048
  3. RIVOTRIL [Suspect]
     Dosage: DOSE DECREASED
     Route: 048
  4. DORMONID [Suspect]
     Indication: DRUG USE FOR UNKNOWN INDICATION
     Dosage: START DATE: 2008
     Route: 065
  5. AMITRIPTYLINE HCL [Concomitant]
     Dates: end: 20080501
  6. CITALOPRAM HYDROBROMIDE [Concomitant]
     Dates: end: 20080501
  7. DEPAKOTE [Concomitant]
     Dates: end: 20080501
  8. 1 CONCOMITANT DRUG [Concomitant]
     Dosage: DRUG: UNSPECIFIED DIAZEPAM DERIVATIVES
  9. 1 CONCOMITANT DRUG [Concomitant]
     Dosage: INCREASED DOSAGE
  10. STILNOX [Concomitant]

REACTIONS (15)
  - BACK PAIN [None]
  - BLADDER DISORDER [None]
  - BLOOD CORTISOL INCREASED [None]
  - CONSTIPATION [None]
  - DIZZINESS [None]
  - DRUG DEPENDENCE [None]
  - HEADACHE [None]
  - ILL-DEFINED DISORDER [None]
  - LIBIDO DECREASED [None]
  - MUSCULOSKELETAL PAIN [None]
  - NERVOUSNESS [None]
  - SOMNOLENCE [None]
  - SYNCOPE [None]
  - TREMOR [None]
  - WITHDRAWAL SYNDROME [None]
